FAERS Safety Report 6264539-9 (Version None)
Quarter: 2009Q3

REPORT INFORMATION
  Report Type: 
  Country: None (occurrence: None)
  Receive Date: 20090710
  Receipt Date: 20090701
  Transmission Date: 20100115
  Serious: No
  Sender: FDA-Public Use
  Company Number: B0581618A

PATIENT
  Age: 41 Year
  Sex: Female

DRUGS (1)
  1. RELENZA [Suspect]
     Indication: PROPHYLAXIS
     Dosage: 5MG PER DAY
     Route: 055
     Dates: start: 20090628, end: 20090629

REACTIONS (2)
  - BRONCHOSPASM [None]
  - DRUG EXPOSURE DURING PREGNANCY [None]
